FAERS Safety Report 9246514 (Version 1)
Quarter: 2013Q2

REPORT INFORMATION
  Report Type: Spontaneous
  Country: US (occurrence: US)
  Receive Date: 20130422
  Receipt Date: 20130422
  Transmission Date: 20140414
  Serious: No
  Sender: FDA-Public Use
  Company Number: US-B.I. PHARMACEUTICALS,INC./RIDGEFIELD-2013-BI-11067BP

PATIENT
  Age: 79 Year
  Sex: Female

DRUGS (10)
  1. PRADAXA [Suspect]
     Indication: ATRIAL FIBRILLATION
     Dosage: 300 MCG
     Route: 048
     Dates: start: 20130416
  2. DIGOXIN [Concomitant]
     Route: 048
  3. VITAMIN D [Concomitant]
     Route: 048
  4. VITAMIN C [Concomitant]
     Route: 048
  5. METOPROLOL [Concomitant]
     Route: 048
  6. CALTRATE [Concomitant]
     Route: 048
  7. DIOVAN [Concomitant]
     Indication: HYPERTENSION
     Dosage: 80 MG
     Route: 048
  8. PRESERVISION [Concomitant]
     Route: 048
  9. BIOTIN [Concomitant]
     Route: 048
  10. FISH OIL [Concomitant]

REACTIONS (1)
  - Neck pain [Recovered/Resolved]
